FAERS Safety Report 5004510-8 (Version None)
Quarter: 2006Q2

REPORT INFORMATION
  Report Type: 
  Country: None (occurrence: None)
  Receive Date: 20060511
  Receipt Date: 20060502
  Transmission Date: 20061013
  Serious: Yes (Death, Hospitalization)
  Sender: FDA-Public Use
  Company Number: 2006BI000398

PATIENT
  Age: 56 Year
  Sex: Female

DRUGS (8)
  1. AVONEX [Suspect]
     Indication: MULTIPLE SCLEROSIS
     Dosage: 30 UG QW IM
     Route: 030
     Dates: start: 20020401
  2. COREG [Concomitant]
  3. AMIODARONE [Concomitant]
  4. COUMADIN [Concomitant]
  5. FOLATE [Concomitant]
  6. PREDNISONE TAB [Concomitant]
  7. DEMADEX [Concomitant]
  8. ALBUTERAL [Concomitant]

REACTIONS (4)
  - ASTHMA [None]
  - CARDIO-RESPIRATORY ARREST [None]
  - CARDIOMYOPATHY [None]
  - UNEVALUABLE EVENT [None]
